FAERS Safety Report 10160614 (Version 2)
Quarter: 2014Q2

REPORT INFORMATION
  Report Type: Spontaneous
  Country: US (occurrence: US)
  Receive Date: 20140508
  Receipt Date: 20140618
  Transmission Date: 20141212
  Serious: No
  Sender: FDA-Public Use
  Company Number: US-009507513-1405USA000515

PATIENT
  Age: 92 Year
  Sex: Female

DRUGS (7)
  1. OXYTROL FOR WOMEN [Suspect]
     Indication: INCONTINENCE
     Dosage: 1 DF, ONCE
     Route: 062
     Dates: start: 20140415, end: 20140418
  2. OXYTROL FOR WOMEN [Suspect]
     Indication: HYPERTONIC BLADDER
  3. TOPROL XL TABLETS [Concomitant]
     Indication: ATRIAL FIBRILLATION
     Dosage: UNK, UNKNOWN
  4. LOSARTAN POTASSIUM [Concomitant]
     Indication: BLOOD PRESSURE
     Dosage: UNK, UNKNOWN
  5. ZETIA [Concomitant]
     Indication: BLOOD CHOLESTEROL
     Dosage: UNK, UNKNOWN
  6. WARFARIN [Concomitant]
     Indication: THROMBOSIS PROPHYLAXIS
     Dosage: UNK, UNKNOWN
  7. MYRBETRIQ [Concomitant]
     Indication: URINARY INCONTINENCE
     Dosage: UNK, UNKNOWN

REACTIONS (9)
  - Application site pain [Not Recovered/Not Resolved]
  - Application site inflammation [Unknown]
  - Application site rash [Unknown]
  - Application site erythema [Not Recovered/Not Resolved]
  - Application site pruritus [Unknown]
  - Application site dryness [Not Recovered/Not Resolved]
  - Drug administered at inappropriate site [Unknown]
  - Drug ineffective [Unknown]
  - Off label use [Unknown]
